FAERS Safety Report 7344641-0 (Version None)
Quarter: 2011Q1

REPORT INFORMATION
  Report Type: 
  Country: None (occurrence: None)
  Receive Date: 20110307
  Receipt Date: 20110307
  Transmission Date: 20110831
  Serious: Yes (Other)
  Sender: FDA-Public Use
  Company Number: None

PATIENT
  Age: 56 Year
  Sex: Female
  Weight: 68.0396 kg

DRUGS (1)
  1. DOMPERIDONE 10 MG [Suspect]
     Indication: IMPAIRED GASTRIC EMPTYING
     Dosage: 10 MG 4 TIMES PER DAY PO
     Route: 048
     Dates: start: 20100801, end: 20101210

REACTIONS (1)
  - ELECTROCARDIOGRAM QT PROLONGED [None]
